FAERS Safety Report 11370179 (Version 2)
Quarter: 2015Q4

REPORT INFORMATION
  Report Type: Spontaneous
  Country: US (occurrence: US)
  Receive Date: 20150812
  Receipt Date: 20151002
  Transmission Date: 20160304
  Serious: Yes (Other)
  Sender: FDA-Public Use
  Company Number: US-BAYER-2015-397283

PATIENT
  Age: 34 Year
  Sex: Female
  Weight: 59.41 kg

DRUGS (1)
  1. MIRENA [Suspect]
     Active Substance: LEVONORGESTREL
     Dosage: 20 MCG/24HR, CONT
     Route: 015
     Dates: start: 201405, end: 20150827

REACTIONS (3)
  - Device dislocation [None]
  - Pelvic pain [None]
  - Abdominal adhesions [None]

NARRATIVE: CASE EVENT DATE: 201508
